FAERS Safety Report 4325049-9 (Version None)
Quarter: 2004Q1

REPORT INFORMATION
  Report Type: 
  Country: None (occurrence: None)
  Receive Date: 20040326
  Receipt Date: 20040326
  Transmission Date: 20041129
  Serious: Yes (Hospitalization, Disabling)
  Sender: FDA-Public Use
  Company Number: None

PATIENT
  Age: 54 Year
  Sex: Male
  Weight: 76.6579 kg

DRUGS (4)
  1. MORPHINE SULFATE [Suspect]
     Indication: OSTEOMYELITIS
     Dosage: 90 MG BID ORAL
     Route: 048
     Dates: start: 20040219, end: 20040221
  2. MORPHINE SULFATE [Suspect]
     Indication: PAIN
     Dosage: 90 MG BID ORAL
     Route: 048
     Dates: start: 20040219, end: 20040221
  3. MORPHINE SULFATE [Suspect]
     Dosage: 75MG HS ORAL
     Route: 048
  4. SULFAMETHOXAZOLE + TRIMETHOPRIM [Concomitant]

REACTIONS (4)
  - ABNORMAL BEHAVIOUR [None]
  - CONFUSIONAL STATE [None]
  - DELUSION [None]
  - HALLUCINATION [None]
